FAERS Safety Report 4494122-7 (Version None)
Quarter: 2004Q4

REPORT INFORMATION
  Report Type: 
  Country: None (occurrence: None)
  Receive Date: 20041105
  Receipt Date: 20040802
  Transmission Date: 20050328
  Serious: Yes (Life-Threatening, Other)
  Sender: FDA-Public Use
  Company Number: JP-BRISTOL-MYERS SQUIBB COMPANY-12658316

PATIENT
  Age: 57 Year
  Sex: Male

DRUGS (3)
  1. BRIPLATIN [Suspect]
     Indication: OESOPHAGEAL CARCINOMA
     Dosage: TOTAL = 200 MG
     Route: 041
     Dates: start: 20030526, end: 20030630
  2. FLUOROURACIL [Suspect]
     Indication: OESOPHAGEAL CARCINOMA
     Dosage: PREV. DOSING: 5.0 G/DAY FOR 5 DAYS (26MAY-30MAY)
     Route: 041
     Dates: start: 20040609, end: 20040630
  3. RADIATION THERAPY [Suspect]

REACTIONS (3)
  - OESOPHAGEAL TUBERCULOSIS [None]
  - OESOPHAGEAL ULCER [None]
  - OESOPHAGITIS [None]
